FAERS Safety Report 6142724-4 (Version None)
Quarter: 2009Q2

REPORT INFORMATION
  Report Type: 
  Country: None (occurrence: None)
  Receive Date: 20090403
  Receipt Date: 20090324
  Transmission Date: 20091009
  Serious: Yes (Hospitalization)
  Sender: FDA-Public Use
  Company Number: GB-AMGEN-US340264

PATIENT
  Sex: Male
  Weight: 111 kg

DRUGS (3)
  1. ENBREL [Suspect]
     Indication: RHEUMATOID ARTHRITIS
     Route: 058
     Dates: start: 20080610, end: 20081201
  2. NAPROXEN [Concomitant]
     Dosage: UNKNOWN
     Route: 065
  3. ACETAMINOPHEN W/ CODEINE [Concomitant]
     Dosage: UNKNOWN
     Route: 065

REACTIONS (2)
  - LOBAR PNEUMONIA [None]
  - RESPIRATORY FAILURE [None]
